FAERS Safety Report 6114693-4 (Version None)
Quarter: 2009Q1

REPORT INFORMATION
  Report Type: 
  Country: None (occurrence: None)
  Receive Date: 20090313
  Receipt Date: 20090311
  Transmission Date: 20090719
  Serious: Yes (Death, Hospitalization)
  Sender: FDA-Public Use
  Company Number: BB-ASTRAZENECA-2009UW05710

PATIENT
  Age: 22 Year
  Sex: Female
  Weight: 76 kg

DRUGS (5)
  1. SEROQUEL [Suspect]
     Dosage: DOSAGE INCREASED GRADUALLY UP TO 450 MG BID IN SEP-2009
     Route: 048
     Dates: start: 20020101
  2. SEROQUEL [Suspect]
     Dosage: DOSAGE INCREASED GRADUALLY UP TO 450 MG BID IN SEP-2009
     Route: 048
     Dates: start: 20080901
  3. BECOPLEX [Concomitant]
     Indication: INTENTIONAL SELF-INJURY
  4. LARGACTIL [Concomitant]
     Indication: SEDATIVE THERAPY
  5. CLONAZEPAM [Concomitant]
     Indication: SEDATIVE THERAPY
     Route: 048
     Dates: start: 20070101

REACTIONS (2)
  - LOCAL SWELLING [None]
  - SWELLING FACE [None]
